FAERS Safety Report 7964817-9 (Version None)
Quarter: 2011Q4

REPORT INFORMATION
  Report Type: 
  Country: None (occurrence: None)
  Receive Date: 20111208
  Receipt Date: 20111128
  Transmission Date: 20120403
  Serious: Yes (Other)
  Sender: FDA-Public Use
  Company Number: PHFR2011GB03639

PATIENT
  Sex: Male
  Weight: 113.4 kg

DRUGS (1)
  1. CLOZARIL [Suspect]
     Indication: SCHIZOPHRENIA
     Route: 048
     Dates: start: 20050516, end: 20110613

REACTIONS (6)
  - NEUTROPHIL COUNT DECREASED [None]
  - WHITE BLOOD CELL COUNT DECREASED [None]
  - SCHIZOPHRENIA [None]
  - IRON DEFICIENCY ANAEMIA [None]
  - HAEMOGLOBIN DECREASED [None]
  - NEUTROPENIA [None]
